FAERS Safety Report 21636229 (Version 1)
Quarter: 2022Q4

REPORT INFORMATION
  Report Type: Spontaneous
  Country: US (occurrence: US)
  Receive Date: 20221124
  Receipt Date: 20221124
  Transmission Date: 20230112
  Serious: Yes (Other)
  Sender: FDA-Public Use
  Company Number: US-BEH-2022152176

PATIENT
  Sex: Female

DRUGS (2)
  1. HIZENTRA [Suspect]
     Active Substance: HUMAN IMMUNOGLOBULIN G
     Indication: Humoral immune defect
     Dosage: 1 GRAM, QOW
     Route: 058
     Dates: start: 20220308
  2. HIZENTRA [Suspect]
     Active Substance: HUMAN IMMUNOGLOBULIN G
     Indication: Iron deficiency anaemia
     Dosage: 4 GRAM, QOW
     Route: 058
     Dates: start: 20220308

REACTIONS (5)
  - Neurogenic bladder [Unknown]
  - Escherichia infection [Unknown]
  - Urinary tract infection [Unknown]
  - Influenza [Unknown]
  - Pyrexia [Unknown]
